FAERS Safety Report 10058533 (Version 2)
Quarter: 2014Q2

REPORT INFORMATION
  Report Type: Spontaneous
  Country: TW (occurrence: TW)
  Receive Date: 20140404
  Receipt Date: 20140519
  Transmission Date: 20141212
  Serious: Yes (Hospitalization, Other)
  Sender: FDA-Public Use
  Company Number: TW-AMGEN INC.-TWNSP2014023688

PATIENT
  Age: 73 Year
  Sex: Male

DRUGS (2)
  1. ENBREL [Suspect]
     Indication: RHEUMATOID ARTHRITIS
     Dosage: 25 MG, BIW
     Route: 058
     Dates: start: 20040416, end: 20140426
  2. ENBREL [Suspect]
     Dosage: 25 MG, BIW
     Route: 058
     Dates: start: 201403, end: 20140509

REACTIONS (4)
  - Colon cancer stage 0 [Recovering/Resolving]
  - Large intestine polyp [Not Recovered/Not Resolved]
  - Gastric ulcer [Recovered/Resolved]
  - Haemoglobin decreased [Recovering/Resolving]
